FAERS Safety Report 6206686-3 (Version None)
Quarter: 2009Q2

REPORT INFORMATION
  Report Type: 
  Country: None (occurrence: None)
  Receive Date: 20090518
  Receipt Date: 20090127
  Transmission Date: 20091009
  Serious: No
  Sender: FDA-Public Use
  Company Number: WAES 0901USA03929

PATIENT
  Age: 62 Year
  Sex: Female

DRUGS (10)
  1. JANUVIA [Suspect]
     Indication: TYPE 2 DIABETES MELLITUS
     Dosage: 100 MG/DAILY/PO
     Route: 048
     Dates: start: 20081001
  2. ASPIRIN [Concomitant]
  3. KLOR-CON [Concomitant]
  4. FUROSEMIDE [Concomitant]
  5. GLIPIZIDE [Concomitant]
  6. ISOSORBIDE [Concomitant]
  7. MELOXICAM [Concomitant]
  8. METFORMIN HYDROCHLORIDE [Concomitant]
  9. NIFEDIPINE [Concomitant]
  10. SIMVASTATIN [Concomitant]

REACTIONS (4)
  - ARTHRALGIA [None]
  - BLOOD GLUCOSE INCREASED [None]
  - INSOMNIA [None]
  - PAIN IN EXTREMITY [None]
